FAERS Safety Report 5086285-X (Version None)
Quarter: 2006Q3

REPORT INFORMATION
  Report Type: 
  Country: None (occurrence: None)
  Receive Date: 20060821
  Receipt Date: 20060821
  Transmission Date: 20061208
  Serious: Yes (Hospitalization)
  Sender: FDA-Public Use
  Company Number: None

PATIENT
  Age: 27 Year
  Sex: Female
  Weight: 49.8957 kg

DRUGS (1)
  1. ORTHO EVRA [Suspect]
     Indication: CONTRACEPTION
     Dosage: 1 PATCH ONCE A WEEK OTHER
     Route: 050
     Dates: start: 20021201, end: 20050323

REACTIONS (2)
  - PAIN [None]
  - TRANSIENT ISCHAEMIC ATTACK [None]
